FAERS Safety Report 25124754 (Version 2)
Quarter: 2025Q1

REPORT INFORMATION
  Report Type: Spontaneous
  Country: US (occurrence: US)
  Receive Date: 20250326
  Receipt Date: 20250326
  Transmission Date: 20250409
  Serious: No
  Sender: CALLIDITAS THERAPEUTICS AB
  Company Number: US-Calliditas-2025CAL00726

PATIENT
  Age: 32 Year
  Sex: Female

DRUGS (8)
  1. TARPEYO [Suspect]
     Active Substance: BUDESONIDE
     Indication: IgA nephropathy
     Route: 048
     Dates: start: 20250223
  2. FISH OIL [Concomitant]
     Active Substance: FISH OIL
  3. GINGER [Concomitant]
     Active Substance: GINGER
  4. LOSARTAN [Concomitant]
     Active Substance: LOSARTAN
  5. MUPIROCIN [Concomitant]
     Active Substance: MUPIROCIN
  6. PROBIOTICS NOS [Concomitant]
     Active Substance: PROBIOTICS NOS
  7. TRETINOIN [Concomitant]
     Active Substance: TRETINOIN
  8. HERBALS\TURMERIC [Concomitant]
     Active Substance: HERBALS\TURMERIC

REACTIONS (2)
  - Palpitations [Unknown]
  - Vertigo [Unknown]

NARRATIVE: CASE EVENT DATE: 20250228
